FAERS Safety Report 9104420 (Version 2)
Quarter: 2013Q2

REPORT INFORMATION
  Report Type: Report from Study
  Country: US (occurrence: US)
  Receive Date: 20130220
  Receipt Date: 20130614
  Transmission Date: 20140414
  Serious: Yes (Death, Other)
  Sender: FDA-Public Use
  Company Number: US-US-EMD SERONO, INC.-7193699

PATIENT
  Age: 64 Year
  Sex: Male

DRUGS (1)
  1. REBIF [Suspect]
     Indication: MULTIPLE SCLEROSIS
     Route: 058
     Dates: start: 20100309

REACTIONS (10)
  - Death [Fatal]
  - Pulmonary mass [Unknown]
  - Myocardial infarction [Unknown]
  - Coronary arterial stent insertion [Unknown]
  - Post-traumatic stress disorder [Not Recovered/Not Resolved]
  - Troponin increased [Unknown]
  - Blood triglycerides increased [Unknown]
  - Sinusitis [Unknown]
  - Gout [Not Recovered/Not Resolved]
  - Injection site erythema [Unknown]
